FAERS Safety Report 10555563 (Version 1)
Quarter: 2014Q4

REPORT INFORMATION
  Report Type: Spontaneous
  Country: US (occurrence: US)
  Receive Date: 20141030
  Receipt Date: 20141030
  Transmission Date: 20150529
  Serious: Yes (Other)
  Sender: FDA-Public Use
  Company Number: US-TEVA-518387USA

PATIENT
  Sex: Female

DRUGS (2)
  1. COPAXONE [Suspect]
     Active Substance: GLATIRAMER ACETATE
     Route: 065
  2. TECFIDERA [Suspect]
     Active Substance: DIMETHYL FUMARATE
     Route: 065
     Dates: start: 2014

REACTIONS (8)
  - Blood pressure abnormal [Unknown]
  - Vomiting [Unknown]
  - Injection site reaction [Unknown]
  - Diarrhoea [Unknown]
  - Multiple sclerosis relapse [Unknown]
  - Heart rate abnormal [Unknown]
  - Malaise [Unknown]
  - Injection site induration [Unknown]

NARRATIVE: CASE EVENT DATE: 2013
